FAERS Safety Report 4747799-2 (Version None)
Quarter: 2005Q3

REPORT INFORMATION
  Report Type: 
  Country: None (occurrence: None)
  Receive Date: 20050818
  Receipt Date: 20050102
  Transmission Date: 20060218
  Serious: Yes (Other)
  Sender: FDA-Public Use
  Company Number: PHEH2005US00479

PATIENT
  Age: 35 Year
  Sex: Female
  Weight: 53 kg

DRUGS (4)
  1. ZELNORM [Suspect]
     Indication: IRRITABLE BOWEL SYNDROME
     Dosage: 6MG; 3 TO 4 TIMES A WEEK
     Route: 048
     Dates: start: 20040501, end: 20040601
  2. ZELNORM [Suspect]
     Route: 048
     Dates: start: 20041101, end: 20041201
  3. COLACE [Concomitant]
  4. FIBERCON [Concomitant]

REACTIONS (5)
  - DRUG EXPOSURE DURING PREGNANCY [None]
  - FOETAL DISORDER [None]
  - GASTROINTESTINAL DISORDER [None]
  - NORMAL NEWBORN [None]
  - ULTRASOUND ANTENATAL SCREEN ABNORMAL [None]
